FAERS Safety Report 9885277 (Version 1)
Quarter: 2014Q1

REPORT INFORMATION
  Report Type: Spontaneous
  Country: US (occurrence: None)
  Receive Date: 20140207
  Receipt Date: 20140207
  Transmission Date: 20141002
  Serious: Yes (Hospitalization)
  Sender: FDA-Public Use
  Company Number: None

PATIENT
  Age: 62 Year
  Sex: Male
  Weight: 90.9 kg

DRUGS (10)
  1. VARENICLINE [Suspect]
     Indication: SMOKING CESSATION THERAPY
     Route: 048
     Dates: start: 20140121, end: 20140127
  2. LISINOPRIL [Concomitant]
  3. OMEPRAZOLE [Concomitant]
  4. CARVEDILOL [Concomitant]
  5. SERTRALINE [Concomitant]
  6. GABAPENTIN [Concomitant]
  7. FLUTICASONE [Concomitant]
  8. AMLODIPINE [Concomitant]
  9. OXYCODONE [Concomitant]
  10. SIMVASTATIN [Concomitant]

REACTIONS (2)
  - Fall [None]
  - Rib fracture [None]
